FAERS Safety Report 4837554-7 (Version None)
Quarter: 2005Q4

REPORT INFORMATION
  Report Type: 
  Country: None (occurrence: None)
  Receive Date: 20051128
  Receipt Date: 20051114
  Transmission Date: 20060501
  Serious: Yes (Other)
  Sender: FDA-Public Use
  Company Number: SG-NOVOPROD-248613

PATIENT
  Age: 15 Year
  Sex: Male

DRUGS (2)
  1. PREDNISOLONE [Concomitant]
  2. NORDITROPIN [Suspect]
     Indication: GROWTH HORMONE DEFICIENCY

REACTIONS (2)
  - CONDITION AGGRAVATED [None]
  - LUPUS NEPHRITIS [None]
